FAERS Safety Report 16554713 (Version 1)
Quarter: 2019Q3

REPORT INFORMATION
  Report Type: Other
  Country: CN (occurrence: CN)
  Receive Date: 20190710
  Receipt Date: 20190710
  Transmission Date: 20191004
  Serious: Yes (Other)
  Sender: FDA-Public Use
  Company Number: CN-AGG-11-2018-1029

PATIENT

DRUGS (6)
  1. BIVALIRUDIN. [Concomitant]
     Active Substance: BIVALIRUDIN
     Route: 042
  2. BIVALIRUDIN. [Concomitant]
     Active Substance: BIVALIRUDIN
     Dosage: LOW DOSE 0.2 MG/KG/H
     Route: 041
  3. AGGRASTAT [Suspect]
     Active Substance: TIROFIBAN HYDROCHLORIDE
     Indication: ANTIPLATELET THERAPY
     Route: 022
  4. ASPIRIN. [Concomitant]
     Active Substance: ASPIRIN
     Dosage: LOADING DOSE BEFORE SURGERY
  5. RAPAMYCIN DRUG ELUTING STENT [Concomitant]
  6. BIVALIRUDIN. [Concomitant]
     Active Substance: BIVALIRUDIN
     Dosage: HIGH DOSE 1.75 MG/KG/H AFTER THE OPERATION
     Route: 041

REACTIONS (1)
  - Post procedural haemorrhage [Unknown]
